FAERS Safety Report 20585800 (Version 4)
Quarter: 2022Q3

REPORT INFORMATION
  Report Type: Report from Study
  Country: US (occurrence: US)
  Receive Date: 20220312
  Receipt Date: 20220817
  Transmission Date: 20221026
  Serious: Yes (Other)
  Sender: FDA-Public Use
  Company Number: US-NOVARTISPH-NVSC2022US054381

PATIENT
  Age: 59 Year
  Sex: Female
  Weight: 61 kg

DRUGS (14)
  1. SIPONIMOD [Suspect]
     Active Substance: SIPONIMOD
     Indication: Secondary progressive multiple sclerosis
     Dosage: 2 MG, QD
     Route: 048
     Dates: start: 20160310, end: 20220303
  2. PLACEBO [Suspect]
     Active Substance: UNSPECIFIED INGREDIENT
     Indication: Secondary progressive multiple sclerosis
     Dosage: UNK
     Route: 048
     Dates: start: 20140624, end: 20160309
  3. BACLOFEN [Concomitant]
     Active Substance: BACLOFEN
     Indication: Muscle spasticity
     Dosage: 20 MG, TID
     Route: 048
     Dates: start: 20181213
  4. DULOXETINE [Concomitant]
     Active Substance: DULOXETINE
     Indication: Paraesthesia
     Dosage: 30 MG, QD
     Route: 048
     Dates: start: 20200827
  5. GABAPENTIN [Concomitant]
     Active Substance: GABAPENTIN
     Indication: Paraesthesia
     Dosage: 600 MG, TID, 900 MG HS
     Route: 048
     Dates: start: 20200511
  6. LEVOTHYROXINE [Concomitant]
     Active Substance: LEVOTHYROXINE
     Indication: Hypothyroidism
     Dosage: 88 MCG QD
     Route: 048
     Dates: start: 20201121
  7. SIMVASTATIN [Concomitant]
     Active Substance: SIMVASTATIN
     Indication: Hypercholesterolaemia
     Dosage: 10 MG, QD
     Route: 048
     Dates: start: 20080320
  8. VITAMIN D [Concomitant]
     Active Substance: VITAMIN D NOS
     Indication: Product used for unknown indication
     Dosage: 500 MG, QD
     Route: 048
     Dates: start: 20190309
  9. TRIMETHOPRIM [Concomitant]
     Active Substance: TRIMETHOPRIM
     Indication: Prophylaxis urinary tract infection
     Dosage: 100 MG, QD
     Route: 048
     Dates: start: 20200715
  10. VITAMIN C [Concomitant]
     Active Substance: ASCORBIC ACID
     Indication: Prophylaxis urinary tract infection
     Dosage: 1000 MG, BID
     Route: 048
     Dates: start: 20191015
  11. ESTRADE [Concomitant]
     Indication: Prophylaxis urinary tract infection
     Dosage: 0.5 G, 3 X 1 WEEK
     Route: 067
     Dates: start: 20200311
  12. FAMOTIDINE [Concomitant]
     Active Substance: FAMOTIDINE
     Indication: Gastrooesophageal reflux disease
     Dosage: 20 MG, PRN
     Route: 048
     Dates: start: 20200312
  13. OMEPRAZOLE [Concomitant]
     Active Substance: OMEPRAZOLE
     Indication: Gastrooesophageal reflux disease
     Dosage: 20 MG, QD
     Route: 048
     Dates: start: 20200312
  14. CALCIUM CARBONATE [Concomitant]
     Active Substance: CALCIUM CARBONATE
     Indication: Gastrooesophageal reflux disease
     Dosage: 2 TABLETS, PRN
     Route: 048
     Dates: start: 20200313

REACTIONS (2)
  - Squamous cell carcinoma of skin [Recovered/Resolved]
  - Squamous cell carcinoma of skin [Recovered/Resolved]

NARRATIVE: CASE EVENT DATE: 20211015
